FAERS Safety Report 20429575 (Version 1)
Quarter: 2022Q1

REPORT INFORMATION
  Report Type: Report from Study
  Country: FR (occurrence: FR)
  Receive Date: 20220204
  Receipt Date: 20220204
  Transmission Date: 20220423
  Serious: Yes (Hospitalization, Other)
  Sender: FDA-Public Use
  Company Number: FR-SERVIER-S19006240

PATIENT

DRUGS (7)
  1. PEGASPARGASE [Suspect]
     Active Substance: PEGASPARGASE
     Indication: Acute lymphocytic leukaemia
     Dosage: 1930 IU, ON D12, D26
     Route: 042
     Dates: start: 20190312, end: 20190324
  2. VINCRISTINE [Suspect]
     Active Substance: VINCRISTINE
     Indication: Acute lymphocytic leukaemia
     Dosage: 1.1 MG, ON D8, D15, D22, D29
     Route: 042
     Dates: start: 20190308, end: 20190329
  3. DAUNORUBICIN [Suspect]
     Active Substance: DAUNORUBICIN
     Indication: Acute lymphocytic leukaemia
     Dosage: 23.1 MG, ON D8, D15, D22, D29
     Route: 042
     Dates: start: 20190308, end: 20190329
  4. PREDNISOLONE [Suspect]
     Active Substance: PREDNISOLONE
     Indication: Acute lymphocytic leukaemia
     Dosage: 60 MG/M2 QD FROM D1 TO D7
     Route: 048
     Dates: start: 20190308, end: 20190328
  5. METHOTREXATE [Suspect]
     Active Substance: METHOTREXATE
     Indication: Acute lymphocytic leukaemia
     Dosage: 12 MG, ON D1
     Route: 037
     Dates: start: 20190313, end: 20190324
  6. CYTARABINE [Suspect]
     Active Substance: CYTARABINE
     Indication: Acute lymphocytic leukaemia
     Dosage: 30 MG, ON D13, D24
     Route: 037
     Dates: start: 20190313, end: 20190324
  7. HYDROCORTISONE [Suspect]
     Active Substance: HYDROCORTISONE
     Indication: Acute lymphocytic leukaemia
     Dosage: 15 MG, ON D13, D24
     Route: 037
     Dates: start: 20190313, end: 20190324

REACTIONS (3)
  - Leukoencephalopathy [Recovered/Resolved]
  - Mucosal inflammation [Recovered/Resolved]
  - Hyperbilirubinaemia [Recovered/Resolved]

NARRATIVE: CASE EVENT DATE: 20190315
